FAERS Safety Report 8545536-7 (Version None)
Quarter: 2012Q3

REPORT INFORMATION
  Report Type: 
  Country: None (occurrence: None)
  Receive Date: 20120727
  Receipt Date: 20111202
  Transmission Date: 20120928
  Serious: No
  Sender: FDA-Public Use
  Company Number: US-ASTRAZENECA-2011SE65474

PATIENT
  Age: 29 Year
  Sex: Female
  Weight: 63.5 kg

DRUGS (13)
  1. FISH OIL VITAMIN [Concomitant]
  2. CLONAZEPAM [Concomitant]
     Indication: ANXIETY
     Route: 048
     Dates: start: 20090101
  3. QUASENSE [Concomitant]
     Indication: CONTRACEPTION
     Route: 048
  4. SEROQUEL [Suspect]
     Indication: SLEEP DISORDER
     Route: 048
  5. SEROQUEL [Suspect]
     Route: 048
     Dates: start: 20111027
  6. SYNTHROID [Concomitant]
     Indication: HYPOTHYROIDISM
     Route: 048
     Dates: start: 20030101
  7. SEROQUEL [Suspect]
     Indication: INSOMNIA
     Route: 048
  8. SEROQUEL [Suspect]
     Route: 048
     Dates: start: 20111027
  9. VIT. B [Concomitant]
  10. DIACAM [Concomitant]
     Indication: NASOPHARYNGITIS
  11. SEROQUEL [Suspect]
     Indication: POST-TRAUMATIC STRESS DISORDER
     Route: 048
  12. SEROQUEL [Suspect]
     Route: 048
     Dates: start: 20111027
  13. IBUPROFEN [Concomitant]

REACTIONS (4)
  - DRUG INEFFECTIVE FOR UNAPPROVED INDICATION [None]
  - MALAISE [None]
  - OFF LABEL USE [None]
  - THERAPEUTIC RESPONSE UNEXPECTED [None]
